FAERS Safety Report 17401399 (Version 2)
Quarter: 2020Q1

REPORT INFORMATION
  Report Type: Spontaneous
  Country: DE (occurrence: DE)
  Receive Date: 20200211
  Receipt Date: 20200322
  Transmission Date: 20200409
  Serious: Yes (Hospitalization)
  Sender: FDA-Public Use
  Company Number: NVSC2020DE033476

PATIENT
  Sex: Male
  Weight: 75 kg

DRUGS (3)
  1. ETORICOXIB. [Concomitant]
     Active Substance: ETORICOXIB
     Indication: SPONDYLITIS
     Dosage: 1 DF, QD
     Route: 065
  2. COSENTYX [Suspect]
     Active Substance: SECUKINUMAB
     Indication: ANKYLOSING SPONDYLITIS
     Dosage: 150 MG, QW (FOR 5 WEEKS)
     Route: 058
     Dates: start: 201905
  3. COSENTYX [Suspect]
     Active Substance: SECUKINUMAB
     Dosage: 150 MG, QMO
     Route: 058
     Dates: start: 201906

REACTIONS (3)
  - Drug ineffective [Not Recovered/Not Resolved]
  - Swelling [Unknown]
  - Deep vein thrombosis [Recovering/Resolving]

NARRATIVE: CASE EVENT DATE: 20191226
